FAERS Safety Report 18781438 (Version 3)
Quarter: 2021Q2

REPORT INFORMATION
  Report Type: Spontaneous
  Country: FR (occurrence: FR)
  Receive Date: 20210125
  Receipt Date: 20210428
  Transmission Date: 20210717
  Serious: Yes (Other)
  Sender: FDA-Public Use
  Company Number: FR-MYLANLABS-2021M1003396

PATIENT
  Age: 75 Year
  Sex: Male
  Weight: 78 kg

DRUGS (2)
  1. BUPIVACAINE MYLAN 20 MG/4 ML, SOLUTION INJECTABLE [Suspect]
     Active Substance: BUPIVACAINE
     Indication: HIP ARTHROPLASTY
  2. BUPIVACAINE MYLAN 20 MG/4 ML, SOLUTION INJECTABLE [Suspect]
     Active Substance: BUPIVACAINE
     Indication: ANAESTHESIA
     Dosage: ONE OR SEVERAL TIMES MONTHLY (20MG/4ML)

REACTIONS (1)
  - Drug ineffective [Unknown]

NARRATIVE: CASE EVENT DATE: 20210113
